FAERS Safety Report 19959318 (Version 1)
Quarter: 2021Q4

REPORT INFORMATION
  Report Type: Spontaneous
  Country: US (occurrence: US)
  Receive Date: 20211014
  Receipt Date: 20211014
  Transmission Date: 20220303
  Serious: Yes (Hospitalization)
  Sender: FDA-Public Use
  Company Number: None

PATIENT
  Age: 39 Year
  Sex: Female

DRUGS (8)
  1. HUMIRA [Suspect]
     Active Substance: ADALIMUMAB
     Indication: Osteoarthritis
     Dosage: ?          OTHER FREQUENCY:Q7DAYS;
     Route: 058
     Dates: start: 20210126
  2. DIAZEPAM [Concomitant]
     Active Substance: DIAZEPAM
  3. FOLIC ACID [Concomitant]
     Active Substance: FOLIC ACID
  4. HYDROXYCHLOROQUINE [Concomitant]
     Active Substance: HYDROXYCHLOROQUINE
  5. LEVOTHYROXINE [Concomitant]
     Active Substance: LEVOTHYROXINE
  6. METHOTREXATE [Concomitant]
     Active Substance: METHOTREXATE
  7. PANTOPRAZOLE [Concomitant]
     Active Substance: PANTOPRAZOLE
  8. WARFARIN [Concomitant]
     Active Substance: WARFARIN

REACTIONS (9)
  - Behcet^s syndrome [None]
  - Abdominal pain upper [None]
  - Arthralgia [None]
  - Joint stiffness [None]
  - Uveitis [None]
  - Eye inflammation [None]
  - Photosensitivity reaction [None]
  - Headache [None]
  - Blood potassium decreased [None]

NARRATIVE: CASE EVENT DATE: 20211014
